FAERS Safety Report 26059136 (Version 1)
Quarter: 2025Q4

REPORT INFORMATION
  Report Type: Spontaneous
  Country: US (occurrence: US)
  Receive Date: 20251118
  Receipt Date: 20251118
  Transmission Date: 20260117
  Serious: No
  Sender: COLLEGIUM PHARMACEUTICAL
  Company Number: US-COLLEGIUM PHARMACEUTICAL, INC.-20250201788

PATIENT

DRUGS (5)
  1. BELBUCA [Suspect]
     Active Substance: BUPRENORPHINE HYDROCHLORIDE
     Indication: Fibromyalgia
     Dosage: 300 MICROGRAM, BID
     Route: 002
     Dates: start: 20250220
  2. BELBUCA [Suspect]
     Active Substance: BUPRENORPHINE HYDROCHLORIDE
     Indication: Pain
  3. LAMICTAL [Concomitant]
     Active Substance: LAMOTRIGINE
     Indication: Product used for unknown indication
     Dosage: UNK, UNKNOWN
     Route: 065
  4. UNSPECIFIED INGREDIENT [Concomitant]
     Active Substance: UNSPECIFIED INGREDIENT
     Indication: Blood pressure abnormal
     Dosage: UNK, UNKNOWN
     Route: 065
  5. TRAMADOL [Concomitant]
     Active Substance: TRAMADOL
     Indication: Product used for unknown indication
     Dosage: UNK, UNKNOWN
     Route: 065

REACTIONS (3)
  - Drug ineffective [Unknown]
  - Product adhesion issue [Unknown]
  - Product label confusion [Recovered/Resolved]

NARRATIVE: CASE EVENT DATE: 20250201
